FAERS Safety Report 8492852-3 (Version None)
Quarter: 2012Q3

REPORT INFORMATION
  Report Type: 
  Country: None (occurrence: None)
  Receive Date: 20120706
  Receipt Date: 20120625
  Transmission Date: 20120928
  Serious: Yes (Other)
  Sender: FDA-Public Use
  Company Number: US-BRISTOL-MYERS SQUIBB COMPANY-16745929

PATIENT
  Sex: Male

DRUGS (1)
  1. ABILIFY [Suspect]
     Dosage: DOSE INCREASED TO 12MG/D AT 30 WEEKS AND TO 18 MG/D AT 34 WK
     Route: 050

REACTIONS (2)
  - INFANTILE APNOEIC ATTACK [None]
  - EXPOSURE DURING BREAST FEEDING [None]
